FAERS Safety Report 9479144 (Version 2)
Quarter: 2013Q3

REPORT INFORMATION
  Report Type: Report from Study
  Country: UA (occurrence: UA)
  Receive Date: 20130827
  Receipt Date: 20130827
  Transmission Date: 20140515
  Serious: Yes (Death, Hospitalization, Other)
  Sender: FDA-Public Use
  Company Number: UA-BRISTOL-MYERS SQUIBB COMPANY-16322208

PATIENT
  Age: 30 Year
  Sex: Male

DRUGS (4)
  1. WARFARIN SODIUM [Suspect]
     Indication: EMBOLISM
     Dosage: 1DF: 2MG AND 6MG
     Route: 048
     Dates: start: 20111114, end: 20111228
  2. ENOXAPARIN [Suspect]
     Indication: EMBOLISM
     Dosage: INTERRUPTED ON 22NOV11
     Route: 058
     Dates: start: 20111114, end: 20111228
  3. PLACEBO [Suspect]
     Indication: EMBOLISM
     Dosage: APIXABAN/PLACEBO AND WARFARIN/PLACEBO INTERRUPTED 28DEC11; ENOXAPARIN/PLACEBO INTERRUPTED 22NOV11
     Route: 048
     Dates: start: 20111114, end: 20111228
  4. ASPIRIN [Concomitant]
     Dates: start: 20111224, end: 20111225

REACTIONS (2)
  - Gastric cancer stage IV [Fatal]
  - Anaemia [Recovered/Resolved]
